FAERS Safety Report 10058133 (Version 1)
Quarter: 2014Q2

REPORT INFORMATION
  Report Type: Spontaneous
  Country: US (occurrence: US)
  Receive Date: 20140404
  Receipt Date: 20140404
  Transmission Date: 20141212
  Serious: No
  Sender: FDA-Public Use
  Company Number: US-PFIZER INC-2014092263

PATIENT
  Age: 19 Month
  Sex: Male
  Weight: 9.9 kg

DRUGS (5)
  1. RAPAMUNE [Suspect]
     Indication: HEART TRANSPLANT
     Dosage: 0.3 ML, 2X/DAY
     Route: 048
     Dates: start: 20140327
  2. LOVENOX [Suspect]
     Dosage: UNK
  3. TACROLIMUS [Concomitant]
     Indication: HEART TRANSPLANT
     Dosage: UNK
     Route: 048
  4. CELLCEPT [Concomitant]
     Dosage: UNK
     Route: 048
  5. ENALAPRIL [Concomitant]
     Dosage: UNK
     Route: 048

REACTIONS (2)
  - Drug level changed [Unknown]
  - Off label use [Unknown]
